FAERS Safety Report 7654610-9 (Version None)
Quarter: 2011Q3

REPORT INFORMATION
  Report Type: 
  Country: None (occurrence: None)
  Receive Date: 20110803
  Receipt Date: 20110725
  Transmission Date: 20111222
  Serious: Yes (Hospitalization, Other)
  Sender: FDA-Public Use
  Company Number: US-ASTRAZENECA-2011SE44269

PATIENT
  Age: 21273 Day
  Sex: Female

DRUGS (2)
  1. SYMBICORT [Suspect]
     Dosage: 160/4.5 MCG BID
     Route: 055
     Dates: start: 20060101
  2. SEROQUEL [Suspect]
     Route: 048
     Dates: start: 20060101

REACTIONS (6)
  - HEART RATE INCREASED [None]
  - FEELING JITTERY [None]
  - HYPERHIDROSIS [None]
  - PAIN IN EXTREMITY [None]
  - WHEEZING [None]
  - BLOOD PRESSURE ABNORMAL [None]
